FAERS Safety Report 7034471-1 (Version None)
Quarter: 2010Q4

REPORT INFORMATION
  Report Type: 
  Country: None (occurrence: None)
  Receive Date: 20101008
  Receipt Date: 20100927
  Transmission Date: 20110411
  Serious: Yes (Other)
  Sender: FDA-Public Use
  Company Number: US-JNJFOC-20101001627

PATIENT
  Sex: Male
  Weight: 44.91 kg

DRUGS (2)
  1. CONCERTA [Suspect]
     Indication: ATTENTION DEFICIT/HYPERACTIVITY DISORDER
     Route: 048
  2. UNKNOWN MEDICATION [Concomitant]
     Indication: MIGRAINE
     Dosage: AS NEEDED
     Route: 048

REACTIONS (4)
  - EYE MOVEMENT DISORDER [None]
  - MEMORY IMPAIRMENT [None]
  - THINKING ABNORMAL [None]
  - VISUAL IMPAIRMENT [None]
